FAERS Safety Report 25523867 (Version 1)
Quarter: 2025Q3

REPORT INFORMATION
  Report Type: Spontaneous
  Country: US (occurrence: US)
  Receive Date: 20250707
  Receipt Date: 20250707
  Transmission Date: 20251021
  Serious: Yes (Other)
  Sender: MYLAN
  Company Number: US-MYLANLABS-2025M1055026

PATIENT
  Age: 66 Year
  Sex: Male

DRUGS (9)
  1. PREDNISONE [Suspect]
     Active Substance: PREDNISONE
     Indication: Intestinal metastasis
  2. PREDNISONE [Suspect]
     Active Substance: PREDNISONE
     Indication: Metastatic malignant melanoma
  3. PREDNISONE [Suspect]
     Active Substance: PREDNISONE
  4. NIVOLUMAB [Suspect]
     Active Substance: NIVOLUMAB
     Indication: Intestinal metastasis
  5. NIVOLUMAB [Suspect]
     Active Substance: NIVOLUMAB
     Indication: Metastatic malignant melanoma
  6. NELVUTAMIG [Suspect]
     Active Substance: NELVUTAMIG
     Indication: Intestinal metastasis
  7. NELVUTAMIG [Suspect]
     Active Substance: NELVUTAMIG
     Indication: Metastatic malignant melanoma
  8. SODIUM CHLORIDE [Concomitant]
     Active Substance: SODIUM CHLORIDE
     Indication: Vehicle solution use
  9. SODIUM CHLORIDE [Concomitant]
     Active Substance: SODIUM CHLORIDE

REACTIONS (1)
  - Orthopnoea [Unknown]

NARRATIVE: CASE EVENT DATE: 20200601
